FAERS Safety Report 13034806 (Version 4)
Quarter: 2017Q1

REPORT INFORMATION
  Report Type: Report from Study
  Country: DE (occurrence: DE)
  Receive Date: 20161216
  Receipt Date: 20170207
  Transmission Date: 20170428
  Serious: Yes (Other)
  Sender: FDA-Public Use
  Company Number: DE-AMGEN-DEUNI2016177571

PATIENT
  Sex: Female

DRUGS (6)
  1. CALCIUM + D3 [Concomitant]
     Active Substance: CALCIUM\CHOLECALCIFEROL
  2. KADCYLA [Concomitant]
     Active Substance: ADO-TRASTUZUMAB EMTANSINE
     Dosage: UNK
     Dates: start: 20141019, end: 20151117
  3. DENOSUMAB [Suspect]
     Active Substance: DENOSUMAB
     Indication: PROPHYLAXIS
     Dosage: 120 MG, QMO
     Route: 058
     Dates: start: 20150608
  4. AMOXICLIN [Concomitant]
     Active Substance: AMOXICILLIN
     Dosage: UNK
     Dates: start: 20160627, end: 20160701
  5. DENOSUMAB [Suspect]
     Active Substance: DENOSUMAB
     Dosage: 120 MG, Q6MO
     Route: 058
  6. TRASTUZUMAB [Concomitant]
     Active Substance: TRASTUZUMAB
     Dosage: UNK
     Dates: start: 20151209

REACTIONS (1)
  - Osteonecrosis of jaw [Not Recovered/Not Resolved]

NARRATIVE: CASE EVENT DATE: 20160830
